FAERS Safety Report 8854799 (Version 1)
Quarter: 2012Q4

REPORT INFORMATION
  Report Type: 
  Country: IE (occurrence: IE)
  Receive Date: 20121023
  Receipt Date: 20121023
  Transmission Date: 20130627
  Serious: No
  Sender: FDA-Public Use
  Company Number: PHHY2012IE080426

PATIENT
  Age: 65 Year
  Sex: Female

DRUGS (2)
  1. TASIGNA [Suspect]
     Indication: LEUKAEMIA
     Dosage: 400 mg, BID
     Route: 048
     Dates: start: 20120814, end: 20120820
  2. ELTROXIN [Concomitant]
     Route: 048

REACTIONS (1)
  - Wheezing [Recovering/Resolving]
